FAERS Safety Report 10137449 (Version 1)
Quarter: 2014Q2

REPORT INFORMATION
  Report Type: Spontaneous
  Country: GB (occurrence: None)
  Receive Date: 20140425
  Receipt Date: 20140425
  Transmission Date: 20141212
  Serious: Yes (Other)
  Sender: FDA-Public Use
  Company Number: AUR-APL-2014-04803

PATIENT
  Age: 64 Year
  Sex: Male
  Weight: 106 kg

DRUGS (8)
  1. TERBINAFINE [Suspect]
     Indication: ONYCHOMYCOSIS
     Route: 048
     Dates: start: 20140311, end: 20140319
  2. AMLODIPINE (AMLODIPINE) [Concomitant]
  3. FINASTERIDE (FINASTERIDE) [Concomitant]
  4. METFORMIN (METFORMIN) [Concomitant]
  5. RAMIPRIL (RAMIPRIL) [Concomitant]
  6. SILDENAFIL (SILDENAFIL) [Concomitant]
  7. SIMVASTATIN (SIMVASTATIN) [Concomitant]
  8. TAMSULOSIN (TAMSULOSIN) [Concomitant]

REACTIONS (5)
  - Agitation [None]
  - Aggression [None]
  - Anger [None]
  - Restlessness [None]
  - Personality change [None]
